FAERS Safety Report 5749785-2 (Version None)
Quarter: 2008Q2

REPORT INFORMATION
  Report Type: 
  Country: None (occurrence: None)
  Receive Date: 20080527
  Receipt Date: 20080522
  Transmission Date: 20081010
  Serious: Yes (Hospitalization)
  Sender: FDA-Public Use
  Company Number: CN-BAYER-200816156GPV

PATIENT
  Age: 80 Year
  Sex: Female

DRUGS (3)
  1. AVELOX [Suspect]
     Indication: RHINITIS ALLERGIC
     Dosage: TOTAL DAILY DOSE: 400 MG  UNIT DOSE: 400 MG
     Route: 048
     Dates: start: 20080301, end: 20080301
  2. CETIRIZINE HCL [Concomitant]
     Indication: RHINITIS ALLERGIC
     Route: 065
     Dates: start: 20080301, end: 20080301
  3. MUCOSOLVAN [Concomitant]
     Indication: RHINITIS ALLERGIC
     Route: 065
     Dates: start: 20080301, end: 20080301

REACTIONS (3)
  - DECREASED APPETITE [None]
  - HEPATITIS E [None]
  - TRANSAMINASES INCREASED [None]
